FAERS Safety Report 23837600 (Version 1)
Quarter: 2024Q2

REPORT INFORMATION
  Report Type: Spontaneous
  Country: US (occurrence: US)
  Receive Date: 20240509
  Receipt Date: 20240509
  Transmission Date: 20240715
  Serious: No
  Sender: FDA-Public Use
  Company Number: US-SA-SAC20240430000095

PATIENT
  Age: 34 Year
  Sex: Female
  Weight: 73.93 kg

DRUGS (9)
  1. DUPIXENT [Suspect]
     Active Substance: DUPILUMAB
     Indication: Dermatitis atopic
     Dosage: 600 MG, 1X
     Route: 058
     Dates: start: 20240415, end: 20240415
  2. TACROLIMUS [Concomitant]
     Active Substance: TACROLIMUS
  3. NIFEDIPINE [Concomitant]
     Active Substance: NIFEDIPINE
  4. METHOCARBAMOL [Concomitant]
     Active Substance: METHOCARBAMOL
  5. MELOXICAM [Concomitant]
     Active Substance: MELOXICAM
  6. PREGABALIN [Concomitant]
     Active Substance: PREGABALIN
  7. OXYCODONE HYDROCHLORIDE [Concomitant]
     Active Substance: OXYCODONE HYDROCHLORIDE
  8. RIZATRIPTAN [Concomitant]
     Active Substance: RIZATRIPTAN
  9. UBRELVY [Concomitant]
     Active Substance: UBROGEPANT

REACTIONS (2)
  - Skin irritation [Unknown]
  - Rash [Recovered/Resolved]

NARRATIVE: CASE EVENT DATE: 20240401
